FAERS Safety Report 6861424-6 (Version None)
Quarter: 2010Q3

REPORT INFORMATION
  Report Type: 
  Country: None (occurrence: None)
  Receive Date: 20100720
  Receipt Date: 20100712
  Transmission Date: 20110219
  Serious: Yes (Other)
  Sender: FDA-Public Use
  Company Number: JP-AMGEN-QUU425276

PATIENT
  Sex: Female

DRUGS (4)
  1. ENBREL [Suspect]
     Indication: RHEUMATOID ARTHRITIS
     Dosage: UNKNOWN
     Route: 058
     Dates: start: 20090601
  2. RHEUMATREX [Suspect]
     Indication: PRODUCT USED FOR UNKNOWN INDICATION
  3. UNSPECIFIED ANTIBIOTIC [Concomitant]
  4. UNSPECIFIED STEROIDS [Concomitant]

REACTIONS (7)
  - CEREBRAL INFARCTION [None]
  - HEART RATE INCREASED [None]
  - HYPOAESTHESIA [None]
  - PROTEIN URINE PRESENT [None]
  - SKIN DISORDER [None]
  - SWELLING FACE [None]
  - TINNITUS [None]
